FAERS Safety Report 8036006-3 (Version None)
Quarter: 2012Q1

REPORT INFORMATION
  Report Type: 
  Country: None (occurrence: None)
  Receive Date: 20120111
  Receipt Date: 20120106
  Transmission Date: 20120608
  Serious: Yes (Disabling)
  Sender: FDA-Public Use
  Company Number: GB-ASTELLAS-2011EU009151

PATIENT
  Sex: Female
  Weight: 80 kg

DRUGS (3)
  1. RANITIDINE [Concomitant]
     Dosage: UNK
     Route: 065
  2. VESICARE [Suspect]
     Indication: BLADDER IRRITATION
     Dosage: 10 MG, UID/QD
     Route: 048
     Dates: start: 20110329, end: 20111129
  3. LISINOPRIL [Concomitant]
     Indication: HYPERTENSION
     Dosage: 20 MG, UID/QD
     Route: 048
     Dates: start: 20090416

REACTIONS (1)
  - LIVER FUNCTION TEST ABNORMAL [None]
